FAERS Safety Report 5194392-6 (Version None)
Quarter: 2006Q4

REPORT INFORMATION
  Report Type: 
  Country: None (occurrence: None)
  Receive Date: 20061228
  Receipt Date: 20061218
  Transmission Date: 20070319
  Serious: Yes (Hospitalization, Other)
  Sender: FDA-Public Use
  Company Number: US-PFIZER INC-2006155172

PATIENT
  Sex: Female
  Weight: 86.2 kg

DRUGS (4)
  1. LIPITOR [Suspect]
  2. CELEBREX [Suspect]
     Indication: ARTHRITIS
  3. VITAMINS [Concomitant]
  4. ALL OTHER THERAPEUTIC PRODUCTS [Concomitant]

REACTIONS (8)
  - ABASIA [None]
  - ARTHRALGIA [None]
  - CARDIAC FLUTTER [None]
  - CARDIAC MURMUR [None]
  - CELLULITIS [None]
  - FLUID RETENTION [None]
  - PHLEBITIS [None]
  - TRANSIENT ISCHAEMIC ATTACK [None]
